FAERS Safety Report 22073785 (Version 1)
Quarter: 2023Q1

REPORT INFORMATION
  Report Type: Spontaneous
  Country: GB (occurrence: GB)
  Receive Date: 20230308
  Receipt Date: 20230308
  Transmission Date: 20230418
  Serious: Yes (Life-Threatening, Hospitalization, Other)
  Sender: FDA-Public Use
  Company Number: GB-MHRA-MED-202303021432472960-ZRTBF

PATIENT
  Sex: Male

DRUGS (1)
  1. DOXYCYCLINE [Suspect]
     Active Substance: DOXYCYCLINE
     Indication: Infection
     Dosage: TWICE A DAY CONTINUED FOR 14 DAYS
     Dates: start: 20230120, end: 20230205

REACTIONS (4)
  - Psychotic disorder [Recovered/Resolved with Sequelae]
  - Mental disorder [Unknown]
  - Suicidal ideation [Unknown]
  - Paranoia [Unknown]

NARRATIVE: CASE EVENT DATE: 20230120
